FAERS Safety Report 19130090 (Version 1)
Quarter: 2021Q2

REPORT INFORMATION
  Report Type: Other
  Country: CN (occurrence: CN)
  Receive Date: 20210413
  Receipt Date: 20210413
  Transmission Date: 20210717
  Serious: Yes (Other)
  Sender: FDA-Public Use
  Company Number: CN-ROCHE-2801938

PATIENT
  Sex: Female

DRUGS (6)
  1. PACLITAXEL. [Suspect]
     Active Substance: PACLITAXEL
     Indication: CERVIX CARCINOMA
     Dosage: GIVEN ON THE FIRST DAY OF CHEMOTHERAPY
     Route: 041
  2. CISPLATIN. [Suspect]
     Active Substance: CISPLATIN
     Indication: CERVIX CARCINOMA
     Dosage: GIVEN ON THE FIRST DAY OF CHEMOTHERAPY
     Route: 041
  3. DEXAMETHASONE. [Concomitant]
     Active Substance: DEXAMETHASONE
     Indication: PRODUCT USED FOR UNKNOWN INDICATION
     Dosage: RESPECTIVELY GIVEN AT 12 HOURS AND 6 HOURS BEFORE PACLITAXEL ADMINISTRATION
     Route: 048
  4. BEVACIZUMAB. [Suspect]
     Active Substance: BEVACIZUMAB
     Indication: CERVIX CARCINOMA
     Dosage: GIVEN 1 DAY BEFORE CHEMOTHERAPY
     Route: 041
  5. CIMETIDINE [Concomitant]
     Active Substance: CIMETIDINE
     Indication: PRODUCT USED FOR UNKNOWN INDICATION
     Dosage: ADMINISTERED 30 MINUTES BEFORE PACLITAXEL ADMINISTRATION
  6. DIPHENHYDRAMINE. [Concomitant]
     Active Substance: DIPHENHYDRAMINE
     Indication: PRODUCT USED FOR UNKNOWN INDICATION
     Dosage: ADMINISTERED 30 MINUTES BEFORE PACLITAXEL ADMINISTRATION

REACTIONS (4)
  - Gastrointestinal disorder [Unknown]
  - Hypersensitivity [Unknown]
  - Liver injury [Unknown]
  - Myelosuppression [Unknown]
